FAERS Safety Report 13274641 (Version 2)
Quarter: 2017Q2

REPORT INFORMATION
  Report Type: Report from Study
  Country: US (occurrence: US)
  Receive Date: 20170227
  Receipt Date: 20170413
  Transmission Date: 20170830
  Serious: Yes (Death, Hospitalization)
  Sender: FDA-Public Use
  Company Number: US-CELGENEUS-USA-2017026120

PATIENT
  Age: 55 Year
  Sex: Male
  Weight: 109.2 kg

DRUGS (2)
  1. DIPHENHYDRAMINE. [Concomitant]
     Active Substance: DIPHENHYDRAMINE
     Indication: PRURITUS
     Dosage: 30 MILLIGRAM
     Route: 048
     Dates: start: 20161102
  2. ISTODAX [Suspect]
     Active Substance: ROMIDEPSIN
     Indication: NEOPLASM
     Dosage: 5 MILLIGRAM/SQ. METER
     Route: 041
     Dates: start: 20161109, end: 20161109

REACTIONS (1)
  - Sudden death [Fatal]

NARRATIVE: CASE EVENT DATE: 20161113
